FAERS Safety Report 21016291 (Version 1)
Quarter: 2022Q2

REPORT INFORMATION
  Report Type: Spontaneous
  Country: US (occurrence: None)
  Receive Date: 20220627
  Receipt Date: 20220627
  Transmission Date: 20220721
  Serious: Yes (Hospitalization)
  Sender: FDA-Public Use
  Company Number: None

PATIENT
  Age: 66 Year
  Sex: Female
  Weight: 47 kg

DRUGS (2)
  1. LITHIUM CARBONATE [Suspect]
     Active Substance: LITHIUM CARBONATE
     Indication: Schizoaffective disorder
     Dosage: OTHER FREQUENCY : AM;?
     Route: 048
     Dates: start: 19950511
  2. ARIPIPRAZOLE [Suspect]
     Active Substance: ARIPIPRAZOLE
     Dosage: 15 MG EVERY DAY PO?
     Route: 048
     Dates: start: 20120211

REACTIONS (5)
  - Accidental overdose [None]
  - Hypotension [None]
  - Altered state of consciousness [None]
  - Antipsychotic drug level increased [None]
  - Product administration error [None]

NARRATIVE: CASE EVENT DATE: 20220601
